FAERS Safety Report 19093857 (Version 1)
Quarter: 2021Q2

REPORT INFORMATION
  Report Type: Spontaneous
  Country: TR (occurrence: TR)
  Receive Date: 20210405
  Receipt Date: 20210405
  Transmission Date: 20210717
  Serious: Yes (Other)
  Sender: FDA-Public Use
  Company Number: TR-INCYTE CORPORATION-2019IN013587

PATIENT

DRUGS (1)
  1. JAKAVI [Suspect]
     Active Substance: RUXOLITINIB
     Indication: AUTOINFLAMMATORY DISEASE
     Dosage: 2.5 MG, QD
     Route: 065

REACTIONS (3)
  - Enzyme level increased [Unknown]
  - Gastroenteritis rotavirus [Unknown]
  - Drug ineffective for unapproved indication [Unknown]
